FAERS Safety Report 8880763 (Version 3)
Quarter: 2013Q4

REPORT INFORMATION
  Report Type: Report from Study
  Country: JP (occurrence: JP)
  Receive Date: 20121101
  Receipt Date: 20131017
  Transmission Date: 20140711
  Serious: Yes (Other)
  Sender: FDA-Public Use
  Company Number: JP-JNJFOC-20121016306

PATIENT
  Age: 57 Year
  Sex: Male
  Weight: 55 kg

DRUGS (7)
  1. STELARA [Suspect]
     Indication: PSORIASIS
     Route: 058
     Dates: start: 20120104
  2. STELARA [Suspect]
     Indication: PSORIASIS
     Route: 058
     Dates: start: 20130426
  3. STELARA [Suspect]
     Indication: PSORIASIS
     Route: 058
     Dates: start: 20120813
  4. STELARA [Suspect]
     Indication: PSORIASIS
     Route: 058
     Dates: start: 20120203
  5. STELARA [Suspect]
     Indication: PSORIASIS
     Route: 058
     Dates: start: 20130208, end: 20130208
  6. BETAMETHASONE BUTYRATE PROPIONATE [Concomitant]
     Indication: PSORIASIS
     Route: 061
     Dates: start: 20120203, end: 20120510
  7. ANTIPSORIATICS FOR TOPICAL USE [Concomitant]
     Indication: PSORIASIS
     Route: 061
     Dates: start: 20120203, end: 20120510

REACTIONS (4)
  - Blood glucose decreased [Recovered/Resolved]
  - Gastroenteritis [Recovered/Resolved]
  - White blood cell count decreased [Recovered/Resolved]
  - Anaemia [Not Recovered/Not Resolved]
